FAERS Safety Report 8448289-6 (Version None)
Quarter: 2012Q2

REPORT INFORMATION
  Report Type: 
  Country: None (occurrence: None)
  Receive Date: 20120619
  Receipt Date: 20120612
  Transmission Date: 20120825
  Serious: Yes (Death, Life-Threatening, Hospitalization)
  Sender: FDA-Public Use
  Company Number: JP-SHIRE-ALL1-2012-02445

PATIENT
  Age: 62 Year
  Sex: Female

DRUGS (41)
  1. STROCAIN                           /00130301/ [Concomitant]
     Indication: ABDOMINAL PAIN UPPER
     Dosage: 10 DF, 1X/WEEK
     Route: 048
     Dates: start: 20061030
  2. FERROMIA                           /00023516/ [Concomitant]
     Dosage: 2 DF, UNKNOWN
     Route: 048
     Dates: start: 20070518, end: 20090410
  3. RHUBARB DRY EXTRACT [Concomitant]
     Indication: CONSTIPATION
     Dosage: 1 G, UNKNOWN
     Route: 048
     Dates: start: 20071224
  4. EVISTA [Concomitant]
     Indication: PRODUCT USED FOR UNKNOWN INDICATION
     Dosage: 1 DF, UNKNOWN
     Route: 048
     Dates: start: 20070413
  5. FOLIAMIN [Concomitant]
     Indication: PRODUCT USED FOR UNKNOWN INDICATION
     Dosage: 2 DF, 1X/WEEK
     Route: 048
     Dates: start: 20070413, end: 20070420
  6. CALCIUM CARBONATE [Concomitant]
     Dosage: 1500 MG, UNKNOWN
     Route: 048
     Dates: start: 20071214
  7. CALCIUM CARBONATE [Concomitant]
     Dosage: 3000 MG, UNKNOWN
     Route: 048
     Dates: start: 20080820
  8. CALCIUM CARBONATE [Concomitant]
     Dosage: UNK, UNKNOWN
     Route: 048
     Dates: start: 20120118
  9. CANDESARTAN CILEXETIL [Concomitant]
     Dosage: 4 MG, UNKNOWN (EXCEPT DAYS OF HD)
     Route: 048
     Dates: start: 20100915, end: 20111107
  10. PREDNISOLONE [Concomitant]
     Dosage: 7.5 MG, UNKNOWN
     Route: 048
     Dates: start: 20100505
  11. TICLOPIDINE HCL [Concomitant]
     Indication: PRODUCT USED FOR UNKNOWN INDICATION
     Dosage: 2 DF, UNKNOWN
     Route: 048
  12. LIDOCAINE [Concomitant]
     Indication: PRODUCT USED FOR UNKNOWN INDICATION
     Dosage: 4 DF, 1X/WEEK (4 SHEETS)
     Route: 062
     Dates: start: 20080128
  13. EQUA [Concomitant]
     Dosage: 50 MG, UNKNOWN
     Route: 048
     Dates: start: 20110223, end: 20110614
  14. LANSOPRAZOLE [Concomitant]
     Indication: ABDOMINAL PAIN UPPER
     Dosage: 15 MG, UNKNOWN
     Route: 048
     Dates: start: 20080204
  15. ACONITE [Concomitant]
     Indication: ARTHRALGIA
     Dosage: 1 G, UNKNOWN
     Route: 048
     Dates: start: 20070910
  16. YOKUKAN-SAN [Concomitant]
     Indication: INSOMNIA
     Dosage: 3 DF, UNKNOWN
     Route: 048
  17. POLARAMINE [Concomitant]
     Indication: PRODUCT USED FOR UNKNOWN INDICATION
     Dosage: 4 MG, UNKNOWN
     Route: 048
     Dates: start: 20061002
  18. CALCIUM CARBONATE [Concomitant]
     Dosage: 1500 MG, UNKNOWN
     Route: 048
     Dates: start: 20100514, end: 20101008
  19. NESINA [Concomitant]
     Dosage: 6.25 MG, UNKNOWN
     Route: 048
     Dates: start: 20110620
  20. FOLIAMIN [Concomitant]
     Dosage: 3 DF, 1X/WEEK
     Route: 048
     Dates: start: 20080521
  21. LIDOCAINE [Concomitant]
     Dosage: 6 DF, 1X/WEEK (6 SHEETS)
     Route: 062
     Dates: start: 20120116
  22. FERROMIA                           /00023516/ [Concomitant]
     Indication: PRODUCT USED FOR UNKNOWN INDICATION
     Dosage: 1 DF, UNKNOWN
     Route: 048
     Dates: start: 20061013
  23. REMITCH [Concomitant]
     Indication: PRODUCT USED FOR UNKNOWN INDICATION
     Dosage: 1 DF, UNKNOWN
     Route: 048
     Dates: start: 20100308
  24. MIGLITOL [Concomitant]
     Indication: PRODUCT USED FOR UNKNOWN INDICATION
     Dosage: 100 MG, UNKNOWN
     Route: 048
     Dates: start: 20120418
  25. FERROMIA                           /00023516/ [Concomitant]
     Dosage: 1 DF, UNKNOWN
     Route: 048
     Dates: start: 20100514, end: 20110610
  26. EQUA [Concomitant]
     Dosage: 100 MG, UNKNOWN
     Route: 048
     Dates: start: 20100904
  27. FOSRENOL [Suspect]
     Indication: HYPERPHOSPHATAEMIA
     Dosage: 500 MG, UNKNOWN
     Route: 048
     Dates: start: 20110225, end: 20120511
  28. LAMISIL                            /00992601/ [Concomitant]
     Indication: ONYCHOMYCOSIS
     Dosage: 1 DF, UNKNOWN
     Route: 048
     Dates: start: 20090701
  29. PREDNISOLONE [Concomitant]
     Indication: PRODUCT USED FOR UNKNOWN INDICATION
     Dosage: 10 MG, UNKNOWN
     Route: 048
     Dates: start: 20100428
  30. PREDNISOLONE [Concomitant]
     Dosage: 5 MG, UNKNOWN
     Route: 048
     Dates: start: 20100526
  31. NESINA [Concomitant]
     Indication: PRODUCT USED FOR UNKNOWN INDICATION
     Dosage: 12.5 MG, UNKNOWN
     Route: 048
     Dates: start: 20110614
  32. LENDORMIN [Concomitant]
     Indication: PRODUCT USED FOR UNKNOWN INDICATION
     Dosage: 0.5 MG, UNKNOWN
     Route: 048
     Dates: start: 20061204
  33. CALCIUM CARBONATE [Concomitant]
     Indication: PRODUCT USED FOR UNKNOWN INDICATION
     Dosage: 1500 MG, UNKNOWN
     Route: 048
     Dates: start: 20070622
  34. EQUA [Concomitant]
     Indication: PRODUCT USED FOR UNKNOWN INDICATION
     Dosage: 50 MG, UNKNOWN
     Route: 048
     Dates: start: 20100719
  35. ATARAX [Concomitant]
     Indication: PRURITUS
     Dosage: 1 DF, UNKNOWN
     Route: 048
  36. LOXONIN [Concomitant]
     Indication: ABDOMINAL PAIN UPPER
     Dosage: 10 DF, 1X/WEEK
     Route: 048
     Dates: start: 20070330
  37. PREDNISOLONE [Concomitant]
     Dosage: 2.5 MG, UNKNOWN
     Route: 048
     Dates: start: 20100707
  38. FOLIAMIN [Concomitant]
     Dosage: 1 DF, 1X/WEEK
     Route: 048
     Dates: start: 20090415
  39. LENDORMIN [Concomitant]
     Dosage: 0.5 MG, UNKNOWN
     Route: 048
     Dates: start: 20061211
  40. POLARAMINE [Concomitant]
     Dosage: 4 MG, UNKNOWN
     Route: 048
  41. CANDESARTAN CILEXETIL [Concomitant]
     Indication: PRODUCT USED FOR UNKNOWN INDICATION
     Dosage: 2 MG, UNKNOWN
     Route: 048
     Dates: start: 20061215, end: 20080521

REACTIONS (4)
  - WRONG TECHNIQUE IN DRUG USAGE PROCESS [None]
  - ACUTE ABDOMEN [None]
  - SEPSIS [None]
  - MEDICATION RESIDUE [None]
